FAERS Safety Report 18973234 (Version 1)
Quarter: 2021Q1

REPORT INFORMATION
  Report Type: Spontaneous
  Country: US (occurrence: US)
  Receive Date: 20210305
  Receipt Date: 20210305
  Transmission Date: 20210420
  Serious: Yes (Other)
  Sender: FDA-Public Use
  Company Number: US-ACCORD-218489

PATIENT
  Age: 8 Year
  Sex: Male

DRUGS (10)
  1. CYTARABINE/CYTARABINE HYDROCHLORIDE/CYTARABINE OCFOSFATE [Concomitant]
     Active Substance: CYTARABINE
     Indication: XANTHOGRANULOMA
  2. CLOFARABINE. [Concomitant]
     Active Substance: CLOFARABINE
     Indication: XANTHOGRANULOMA
  3. CYTARABINE. [Concomitant]
     Active Substance: CYTARABINE
     Indication: HISTIOCYTIC SARCOMA
  4. CYTARABINE/CYTARABINE HYDROCHLORIDE/CYTARABINE OCFOSFATE [Concomitant]
     Active Substance: CYTARABINE
     Indication: HISTIOCYTIC SARCOMA
     Route: 039
  5. HYDROCORTISONE. [Concomitant]
     Active Substance: HYDROCORTISONE
     Indication: XANTHOGRANULOMA
     Route: 037
  6. METHOTREXATE. [Suspect]
     Active Substance: METHOTREXATE
     Indication: HISTIOCYTIC SARCOMA
     Dosage: 1 DF ? 25 MG/ML
     Route: 039
  7. HYDROCORTISONE. [Concomitant]
     Active Substance: HYDROCORTISONE
     Indication: HISTIOCYTIC SARCOMA
     Route: 037
  8. CLOFARABINE. [Concomitant]
     Active Substance: CLOFARABINE
     Indication: HISTIOCYTIC SARCOMA
  9. CYTARABINE. [Concomitant]
     Active Substance: CYTARABINE
     Indication: XANTHOGRANULOMA
     Route: 039
  10. METHOTREXATE. [Suspect]
     Active Substance: METHOTREXATE
     Indication: XANTHOGRANULOMA
     Route: 039

REACTIONS (3)
  - Demyelination [Unknown]
  - Seizure [Unknown]
  - Off label use [Unknown]
